FAERS Safety Report 25348649 (Version 1)
Quarter: 2025Q2

REPORT INFORMATION
  Report Type: Report from Study
  Country: JP (occurrence: JP)
  Receive Date: 20250522
  Receipt Date: 20250522
  Transmission Date: 20250717
  Serious: Yes (Hospitalization)
  Sender: EISAI
  Company Number: JP-Eisai-EC-2025-189607

PATIENT
  Age: 57 Year

DRUGS (1)
  1. LEQEMBI [Suspect]
     Active Substance: LECANEMAB-IRMB
     Indication: Dementia
     Route: 041

REACTIONS (2)
  - Pyrexia [Unknown]
  - Delirium [Unknown]

NARRATIVE: CASE EVENT DATE: 20240101
